FAERS Safety Report 10057135 (Version 1)
Quarter: 2014Q2

REPORT INFORMATION
  Report Type: Report from Study
  Country: GB (occurrence: GB)
  Receive Date: 20140403
  Receipt Date: 20140403
  Transmission Date: 20141212
  Serious: Yes (Hospitalization)
  Sender: FDA-Public Use
  Company Number: PHHY2014GB039836

PATIENT
  Age: 37 Year
  Sex: Male

DRUGS (2)
  1. AMN107 [Suspect]
     Indication: CHRONIC MYELOID LEUKAEMIA
     Dosage: 300 MG, BID
     Dates: start: 20110402, end: 20131104
  2. AMN107 [Suspect]
     Dosage: UNK

REACTIONS (8)
  - Empyema [Unknown]
  - Pleural effusion [Recovering/Resolving]
  - Dyspnoea [Unknown]
  - Pyrexia [Unknown]
  - Haemothorax [Recovered/Resolved]
  - Lower respiratory tract infection [Recovering/Resolving]
  - Night sweats [Recovering/Resolving]
  - C-reactive protein increased [Unknown]
